FAERS Safety Report 9122327 (Version 1)
Quarter: 2013Q1

REPORT INFORMATION
  Report Type: Spontaneous
  Country: US (occurrence: US)
  Receive Date: 20130227
  Receipt Date: 20130227
  Transmission Date: 20140127
  Serious: Yes (Hospitalization, Other)
  Sender: FDA-Public Use
  Company Number: US-ELI_LILLY_AND_COMPANY-US201105007464

PATIENT
  Age: 62 Year
  Sex: Female

DRUGS (17)
  1. FORTEO [Suspect]
     Indication: OSTEOPOROSIS
     Dosage: 20 UG, QD
     Dates: start: 20110424
  2. FORTEO [Suspect]
     Dosage: 20 UG, QD
     Dates: start: 20110424
  3. FORTEO [Suspect]
     Dosage: 20 UG, QD
     Dates: start: 20110424
  4. LASIX [Concomitant]
     Dosage: 80 MG, QD
  5. SPIRONOLACTONE [Concomitant]
     Dosage: 100 MG, QD
  6. POTASSIUM [Concomitant]
     Dosage: 20 MEQ, QD
  7. WARFARIN [Concomitant]
     Dosage: 5 MG, QOD
  8. MELOXICAM [Concomitant]
     Dosage: 7.5 MG, BID
  9. WELLBUTRIN [Concomitant]
     Dosage: 300 MG, QD
  10. CALCIUM [Concomitant]
     Dosage: 1000 MG, QD
  11. VITAMIN D [Concomitant]
     Dosage: 600 MG, QD
  12. MAGNESIUM [Concomitant]
     Dosage: 500 MG, QD
  13. VITAMIN C [Concomitant]
     Dosage: 500 MG, QD
  14. TRAMADOL [Concomitant]
     Dosage: 200 MG, QD
  15. TRAMADOL [Concomitant]
     Dosage: 50 MG, PRN
  16. ATENOLOL [Concomitant]
     Dosage: 50 MG, QD
  17. NEXIUM [Concomitant]
     Dosage: 40 MG, QD

REACTIONS (5)
  - Hip fracture [Unknown]
  - Wrist fracture [Unknown]
  - Fall [Unknown]
  - Injection site reaction [Recovered/Resolved]
  - Injection site pain [Not Recovered/Not Resolved]
